FAERS Safety Report 19312946 (Version 1)
Quarter: 2021Q2

REPORT INFORMATION
  Report Type: Report from Study
  Country: US (occurrence: US)
  Receive Date: 20210527
  Receipt Date: 20210527
  Transmission Date: 20210717
  Serious: Yes (Life-Threatening, Other)
  Sender: FDA-Public Use
  Company Number: US-JNJFOC-20210543971

PATIENT

DRUGS (6)
  1. DARATUMUMAB [Suspect]
     Active Substance: DARATUMUMAB
     Indication: PLASMA CELL MYELOMA
     Dosage: ON DAYS 1, 8, 15, AND 22
     Route: 042
     Dates: start: 201701, end: 202011
  2. BORTEZOMIB. [Suspect]
     Active Substance: BORTEZOMIB
     Indication: PLASMA CELL MYELOMA
     Dosage: ON DAYS 1, 8, 15, AND 22
     Route: 042
     Dates: start: 201701, end: 202011
  3. DIPHENHYDRAMINE. [Concomitant]
     Active Substance: DIPHENHYDRAMINE
     Dosage: 2550 MG
     Route: 042
  4. DEXAMETHASONE. [Suspect]
     Active Substance: DEXAMETHASONE
     Indication: PLASMA CELL MYELOMA
     Dosage: 20 AND 40 MG, ON DAYS 1, 8, 15, AND 22
     Route: 042
     Dates: start: 201701, end: 202011
  5. VENETOCLAX. [Suspect]
     Active Substance: VENETOCLAX
     Indication: PLASMA CELL MYELOMA
     Route: 065
     Dates: start: 201701, end: 202011
  6. ACETAMINOPHEN. [Concomitant]
     Active Substance: ACETAMINOPHEN
     Route: 048

REACTIONS (23)
  - Pneumonia [Unknown]
  - Myalgia [Unknown]
  - Skin infection [Unknown]
  - Lymphopenia [Unknown]
  - Anaemia [Unknown]
  - Hyponatraemia [Unknown]
  - Thrombocytopenia [Unknown]
  - Hypercalcaemia [Unknown]
  - Hypotension [Unknown]
  - Hypokalaemia [Unknown]
  - Aspartate aminotransferase increased [Unknown]
  - Fatigue [Unknown]
  - Asthenia [Unknown]
  - Diarrhoea [Unknown]
  - Hyperkalaemia [Unknown]
  - Dyspnoea [Unknown]
  - Back pain [Unknown]
  - Leukopenia [Unknown]
  - Hypertension [Unknown]
  - Neuropathy peripheral [Unknown]
  - Constipation [Unknown]
  - Headache [Unknown]
  - Alanine aminotransferase increased [Unknown]
